FAERS Safety Report 5055382-7 (Version None)
Quarter: 2006Q3

REPORT INFORMATION
  Report Type: 
  Country: None (occurrence: None)
  Receive Date: 20060719
  Receipt Date: 20060711
  Transmission Date: 20061208
  Serious: Yes (Hospitalization)
  Sender: FDA-Public Use
  Company Number: AU-BOEHRINGER INGELHEIM PHARMACEUTICALS, INC.-2006-BP-07900AU

PATIENT
  Sex: Female
  Weight: 90 kg

DRUGS (4)
  1. MOBIC [Suspect]
     Indication: ARTHRITIS
     Route: 048
     Dates: start: 20051205, end: 20051206
  2. DITHIAZIDE [Concomitant]
  3. EPILIM EC (SODIUM VALPROATE) [Concomitant]
     Indication: EPILEPSY
  4. OROXINE [Concomitant]
     Indication: HYPOTHYROIDISM

REACTIONS (3)
  - FACE OEDEMA [None]
  - LIP EXFOLIATION [None]
  - PARAESTHESIA ORAL [None]
